FAERS Safety Report 7164523-7 (Version None)
Quarter: 2010Q4

REPORT INFORMATION
  Report Type: 
  Country: None (occurrence: None)
  Receive Date: 20101123
  Receipt Date: 20100728
  Transmission Date: 20110411
  Serious: No
  Sender: FDA-Public Use
  Company Number: 016499

PATIENT
  Sex: Female
  Weight: 68 kg

DRUGS (2)
  1. CIMZIA [Suspect]
     Indication: RHEUMATOID ARTHRITIS
     Dosage: (800 MG MONTHLY SUBCUTANEOUS)
     Route: 058
     Dates: start: 20100301
  2. PREDNISONE [Concomitant]

REACTIONS (5)
  - ARTHROPOD BITE [None]
  - BURNING SENSATION [None]
  - PRURITUS GENERALISED [None]
  - RASH [None]
  - SKIN INJURY [None]
